FAERS Safety Report 17791780 (Version 1)
Quarter: 2020Q2

REPORT INFORMATION
  Report Type: Spontaneous
  Country: CN (occurrence: CN)
  Receive Date: 20200515
  Receipt Date: 20200515
  Transmission Date: 20200714
  Serious: Yes (Other)
  Sender: FDA-Public Use
  Company Number: CN-ASTRAZENECA-2020SE62546

PATIENT
  Age: 19500 Day
  Sex: Female
  Weight: 68 kg

DRUGS (5)
  1. TERBUTALINE SULPHATE [Suspect]
     Active Substance: TERBUTALINE SULFATE
     Indication: BRONCHITIS CHRONIC
     Route: 055
     Dates: start: 20200423, end: 20200425
  2. ATRACURIUM BESILATE [Suspect]
     Active Substance: ATRACURIUM BESYLATE
     Indication: RADICAL MASTECTOMY
     Route: 042
     Dates: start: 20200423, end: 20200423
  3. SODIUM CHLORIDE. [Concomitant]
     Active Substance: SODIUM CHLORIDE
     Dosage: 2.0ML UNKNOWN
  4. BUDESONIDE. [Suspect]
     Active Substance: BUDESONIDE
     Indication: BRONCHITIS CHRONIC
     Route: 055
     Dates: start: 20200423, end: 20200425
  5. ATRACURIUM BESILATE [Suspect]
     Active Substance: ATRACURIUM BESYLATE
     Indication: MUSCLE RELAXANT THERAPY
     Route: 042
     Dates: start: 20200423, end: 20200423

REACTIONS (4)
  - Pruritus [Recovered/Resolved]
  - Therapy cessation [Unknown]
  - Erythema [Recovered/Resolved]
  - Blister [Unknown]

NARRATIVE: CASE EVENT DATE: 20200425
